FAERS Safety Report 22173739 (Version 4)
Quarter: 2024Q3

REPORT INFORMATION
  Report Type: Report from Study
  Country: US (occurrence: US)
  Receive Date: 20230404
  Receipt Date: 20240704
  Transmission Date: 20241017
  Serious: Yes (Other)
  Sender: TAKEDA
  Company Number: US-TAKEDA-US201820995

PATIENT
  Sex: Female

DRUGS (2)
  1. HUMAN IMMUNOGLOBULIN G [Suspect]
     Active Substance: HUMAN IMMUNOGLOBULIN G
     Indication: Immunodeficiency common variable
     Dosage: 18 GRAM, Q2WEEKS
     Route: 058
  2. HUMAN IMMUNOGLOBULIN G [Suspect]
     Active Substance: HUMAN IMMUNOGLOBULIN G
     Indication: Primary immunodeficiency syndrome

REACTIONS (11)
  - Pneumonia [Unknown]
  - Neuropathy peripheral [Unknown]
  - Spinal fracture [Unknown]
  - Infusion site discolouration [Not Recovered/Not Resolved]
  - Infusion site warmth [Unknown]
  - Bronchitis [Unknown]
  - Infusion site reaction [Unknown]
  - Malaise [Unknown]
  - Meniscus injury [Unknown]
  - Arthritis [Unknown]
  - COVID-19 [Unknown]
